FAERS Safety Report 4662308-4 (Version None)
Quarter: 2005Q2

REPORT INFORMATION
  Report Type: 
  Country: None (occurrence: None)
  Receive Date: 20050512
  Receipt Date: 20050425
  Transmission Date: 20051028
  Serious: Yes (Hospitalization, Other)
  Sender: FDA-Public Use
  Company Number: US_0504116503

PATIENT
  Age: 62 Year
  Sex: Female
  Weight: 80 kg

DRUGS (3)
  1. HUMALOG [Suspect]
     Indication: DIABETES MELLITUS
     Dosage: 30 U/ 2 DAY
     Dates: start: 20020101
  2. HUMULIN 70/30 [Suspect]
     Indication: DIABETES MELLITUS
     Dosage: 35 U/2 DAY
     Dates: start: 20050301
  3. ZANTAC [Concomitant]

REACTIONS (7)
  - ANAPHYLACTIC SHOCK [None]
  - DRUG HYPERSENSITIVITY [None]
  - LOWER LIMB FRACTURE [None]
  - PAIN [None]
  - PAIN IN EXTREMITY [None]
  - VOMITING [None]
  - WEIGHT INCREASED [None]
